FAERS Safety Report 20524147 (Version 1)
Quarter: 2022Q1

REPORT INFORMATION
  Report Type: Spontaneous
  Country: JP (occurrence: JP)
  Receive Date: 20220228
  Receipt Date: 20220228
  Transmission Date: 20220423
  Serious: Yes (Other)
  Sender: FDA-Public Use
  Company Number: JP-SUN PHARMACEUTICAL INDUSTRIES LTD-2022RR-328147

PATIENT
  Age: 44 Year
  Sex: Female

DRUGS (6)
  1. CAPECITABINE [Suspect]
     Active Substance: CAPECITABINE
     Indication: Breast cancer stage III
     Dosage: UNK
     Route: 065
  2. FULVESTRANT [Suspect]
     Active Substance: FULVESTRANT
     Indication: Breast cancer stage III
     Dosage: UNK
     Route: 065
  3. TAMOXIFEN [Suspect]
     Active Substance: TAMOXIFEN
     Indication: Breast cancer stage III
     Dosage: UNK
     Route: 065
  4. ERIBULIN [Suspect]
     Active Substance: ERIBULIN
     Indication: Breast cancer stage III
     Dosage: UNK
     Route: 065
  5. CYCLOPHOSPHAMIDE\EPIRUBICIN [Suspect]
     Active Substance: CYCLOPHOSPHAMIDE\EPIRUBICIN
     Indication: Breast cancer stage III
     Dosage: UNK
     Route: 065
  6. ABEMACICLIB [Suspect]
     Active Substance: ABEMACICLIB

REACTIONS (2)
  - Disease recurrence [Unknown]
  - Drug ineffective [Unknown]
